FAERS Safety Report 7223927-4 (Version None)
Quarter: 2011Q1

REPORT INFORMATION
  Report Type: 
  Country: None (occurrence: None)
  Receive Date: 20110113
  Receipt Date: 20110104
  Transmission Date: 20110831
  Serious: No
  Sender: FDA-Public Use
  Company Number: US-BIOGENIDEC-2010BI031969

PATIENT
  Age: 51 Year
  Sex: Female

DRUGS (5)
  1. TYSABRI [Suspect]
     Indication: MULTIPLE SCLEROSIS
     Route: 042
     Dates: start: 20100819, end: 20101116
  2. OXYCODONE HCL AND ACETAMINOPHEN [Concomitant]
     Indication: PAIN IN EXTREMITY
     Dates: start: 20100101
  3. BACLOFEN [Concomitant]
     Indication: MUSCLE SPASMS
     Dates: start: 20090624
  4. OXYCODONE HCL AND ACETAMINOPHEN [Concomitant]
     Dates: start: 20100101
  5. FUROSEMIDE [Concomitant]
     Indication: OEDEMA
     Route: 048
     Dates: start: 20100101

REACTIONS (7)
  - PAIN [None]
  - MYALGIA [None]
  - BURNING SENSATION [None]
  - PAIN IN EXTREMITY [None]
  - MUSCLE SPASMS [None]
  - HYPOAESTHESIA [None]
  - PARAESTHESIA [None]
